FAERS Safety Report 9451049 (Version 1)
Quarter: 2013Q3

REPORT INFORMATION
  Report Type: Spontaneous
  Country: US (occurrence: None)
  Receive Date: 20130807
  Receipt Date: 20130807
  Transmission Date: 20140515
  Serious: Yes (Other)
  Sender: FDA-Public Use
  Company Number: AUR-APL-2013-06438

PATIENT
  Sex: Female

DRUGS (2)
  1. LISINOPRIL (LISINOPRIL) [Suspect]
     Indication: PRODUCT USED FOR UNKNOWN INDICATION
  2. ENBREL [Suspect]
     Indication: MIXED CONNECTIVE TISSUE DISEASE
     Dosage: (50 MG, 1 WK), SUBCUTANEOUS
     Route: 058

REACTIONS (3)
  - Type 2 diabetes mellitus [None]
  - Hypothyroidism [None]
  - Cough [None]
